FAERS Safety Report 9337440 (Version 2)
Quarter: 2013Q3

REPORT INFORMATION
  Report Type: Report from Study
  Country: US (occurrence: US)
  Receive Date: 20130607
  Receipt Date: 20130705
  Transmission Date: 20140515
  Serious: No
  Sender: FDA-Public Use
  Company Number: US-VERTEX PHARMACEUTICALS INC-2013-006794

PATIENT
  Age: 52 Year
  Sex: Male

DRUGS (6)
  1. VX-950 (TELAPREVIR) [Suspect]
     Indication: HEPATITIS C
     Dosage: 1125 MG, BID
     Route: 048
     Dates: start: 20130517
  2. PEGASYS [Suspect]
     Indication: HEPATITIS C
     Dosage: 180 ?G, QW
     Route: 058
     Dates: start: 20130517
  3. RIBAVIRIN [Suspect]
     Indication: HEPATITIS C
     Dosage: 1000 MG, QD
     Route: 048
     Dates: start: 20130517
  4. TRUVADA [Concomitant]
  5. ATAZANAVIR [Concomitant]
  6. RITONAVIR [Concomitant]

REACTIONS (4)
  - Off label use [Unknown]
  - Rash maculo-papular [Recovered/Resolved]
  - Anorectal discomfort [Not Recovered/Not Resolved]
  - Pruritus [Unknown]
